FAERS Safety Report 7707790-0 (Version None)
Quarter: 2011Q3

REPORT INFORMATION
  Report Type: 
  Country: None (occurrence: None)
  Receive Date: 20110824
  Receipt Date: 20110822
  Transmission Date: 20111222
  Serious: Yes (Other)
  Sender: FDA-Public Use
  Company Number: US-BAYER-2011-076363

PATIENT
  Age: 38 Year
  Sex: Female

DRUGS (2)
  1. MAGNEVIST [Suspect]
     Indication: BREAST CANCER
  2. MAGNEVIST [Suspect]
     Indication: NUCLEAR MAGNETIC RESONANCE IMAGING BREAST
     Dosage: 12 ML, UNK
     Route: 042
     Dates: start: 20110822, end: 20110822

REACTIONS (5)
  - HYPERSENSITIVITY [None]
  - URTICARIA [None]
  - SPEECH DISORDER [None]
  - ERYTHEMA [None]
  - HYPERHIDROSIS [None]
